FAERS Safety Report 9892222 (Version 1)
Quarter: 2014Q1

REPORT INFORMATION
  Report Type: Spontaneous
  Country: CO (occurrence: CO)
  Receive Date: 20140212
  Receipt Date: 20140212
  Transmission Date: 20141002
  Serious: Yes (Other)
  Sender: FDA-Public Use
  Company Number: CO-UCBSA-112067

PATIENT
  Age: 74 Year
  Sex: Male

DRUGS (4)
  1. NEUPRO [Suspect]
     Indication: PARKINSON^S DISEASE
     Dosage: DAILY DOSE: 4 MG
     Route: 062
     Dates: start: 20130521, end: 20131229
  2. LEVODOPA/ CARBIDOPA/ ENTACAPONE [Concomitant]
     Dosage: 125/31.25/200 MG EACH 6 HOURS
  3. ENALAPRIL [Concomitant]
     Dosage: 5 MG DAILY SINCE 10 YEARS AGO
  4. AMIODARONE [Concomitant]
     Dosage: 200 MG DAILY SINCE 13 YEARS AGO

REACTIONS (1)
  - Urinary incontinence [Recovered/Resolved]
